FAERS Safety Report 14155457 (Version 4)
Quarter: 2017Q4

REPORT INFORMATION
  Report Type: Report from Study
  Country: CA (occurrence: CA)
  Receive Date: 20171103
  Receipt Date: 20171212
  Transmission Date: 20180321
  Serious: Yes (Hospitalization)
  Sender: FDA-Public Use
  Company Number: CA-TAKEDA-2017TUS004661

PATIENT
  Age: 56 Year
  Sex: Female

DRUGS (7)
  1. MAGNESIUM [Concomitant]
     Active Substance: MAGNESIUM
     Dosage: UNK
  2. VITAMIN D [Concomitant]
     Active Substance: CHOLECALCIFEROL
     Dosage: 800 IU, QD
  3. VEDOLIZUMAB [Suspect]
     Active Substance: VEDOLIZUMAB
     Indication: CROHN^S DISEASE
     Dosage: 300 MG, UNK
     Route: 042
     Dates: start: 20161114, end: 20171031
  4. VEDOLIZUMAB [Suspect]
     Active Substance: VEDOLIZUMAB
     Dosage: 300 MG, Q4WEEKS
     Route: 042
     Dates: start: 20170331
  5. STELARA [Concomitant]
     Active Substance: USTEKINUMAB
     Dosage: UNK
  6. PROLIA [Concomitant]
     Active Substance: DENOSUMAB
     Indication: BONE DENSITY DECREASED
     Dosage: UNK
  7. CALCIUM [Concomitant]
     Active Substance: CALCIUM
     Dosage: 2000 MG, QD

REACTIONS (17)
  - Anaemia [Unknown]
  - Off label use [Unknown]
  - Proctalgia [Unknown]
  - Dehydration [Unknown]
  - Hepatic enzyme increased [Unknown]
  - Blood pressure increased [Unknown]
  - Food poisoning [Unknown]
  - Cough [Recovered/Resolved]
  - Crohn^s disease [Unknown]
  - Breast pain [Unknown]
  - Heart rate increased [Unknown]
  - Drug ineffective [Unknown]
  - Influenza [Unknown]
  - Weight decreased [Unknown]
  - Decreased appetite [Unknown]
  - Dyspnoea [Unknown]
  - Fatigue [Unknown]

NARRATIVE: CASE EVENT DATE: 2017
